FAERS Safety Report 8657893 (Version 3)
Quarter: 2012Q4

REPORT INFORMATION
  Report Type: 
  Country: CN (occurrence: CN)
  Receive Date: 20120710
  Receipt Date: 20120903
  Transmission Date: 20130627
  Serious: Yes (Other)
  Sender: FDA-Public Use
  Company Number: CN-PFIZER INC-2012160371

PATIENT
  Age: 68 Year
  Sex: Male

DRUGS (4)
  1. MS CONTIN [Suspect]
     Indication: CANCER PAIN
     Dosage: 30 mg, daily
     Route: 048
     Dates: start: 20120527, end: 20120527
  2. MS CONTIN [Suspect]
     Dosage: 60 mg, daily
     Route: 065
     Dates: start: 20120529, end: 20120529
  3. MS CONTIN [Suspect]
     Dosage: UNK
     Route: 048
     Dates: start: 201206, end: 201206
  4. TRAMADOL HCL [Suspect]
     Indication: PRODUCT USED FOR UNKNOWN INDICATION
     Dosage: UNK
     Route: 065

REACTIONS (2)
  - Chills [Recovered/Resolved]
  - Hyperpyrexia [Recovered/Resolved]
